FAERS Safety Report 15779101 (Version 1)
Quarter: 2019Q1

REPORT INFORMATION
  Report Type: Spontaneous
  Country: US (occurrence: US)
  Receive Date: 20190101
  Receipt Date: 20190101
  Transmission Date: 20190417
  Serious: No
  Sender: FDA-Public Use
  Company Number: US-JNJFOC-20181220207

PATIENT
  Age: 34 Year
  Sex: Male
  Weight: 89.36 kg

DRUGS (2)
  1. MENS ROGAINE [Suspect]
     Active Substance: MINOXIDIL
     Route: 061
  2. MENS ROGAINE [Suspect]
     Active Substance: MINOXIDIL
     Indication: ALOPECIA
     Dosage: HALF CAP
     Route: 061
     Dates: start: 20181202

REACTIONS (1)
  - Skin swelling [Unknown]

NARRATIVE: CASE EVENT DATE: 20181203
